FAERS Safety Report 16596765 (Version 2)
Quarter: 2019Q3

REPORT INFORMATION
  Report Type: Report from Study
  Country: US (occurrence: US)
  Receive Date: 20190719
  Receipt Date: 20190725
  Transmission Date: 20191004
  Serious: Yes (Hospitalization, Other)
  Sender: FDA-Public Use
  Company Number: US-ROCHE-2357347

PATIENT
  Age: 79 Year
  Sex: Female

DRUGS (24)
  1. CEFTRIAXONE. [Suspect]
     Active Substance: CEFTRIAXONE
     Indication: INFECTION
     Route: 065
  2. VORICONAZOLE. [Concomitant]
     Active Substance: VORICONAZOLE
     Indication: IMMUNODEFICIENCY
  3. CLARITIN [Concomitant]
     Active Substance: LORATADINE
  4. PROCHLORPERAZINE. [Concomitant]
     Active Substance: PROCHLORPERAZINE
  5. VENETOCLAX. [Suspect]
     Active Substance: VENETOCLAX
     Route: 048
     Dates: start: 2019
  6. PROLIA [Concomitant]
     Active Substance: DENOSUMAB
  7. VENETOCLAX. [Suspect]
     Active Substance: VENETOCLAX
     Indication: PLASMA CELL MYELOMA
     Route: 048
     Dates: start: 20190320, end: 20190503
  8. LEVOTHROID [Concomitant]
     Active Substance: LEVOTHYROXINE SODIUM
  9. PRAVASTATIN. [Concomitant]
     Active Substance: PRAVASTATIN
     Indication: HYPERLIPIDAEMIA
  10. OMEPRAZOLE. [Concomitant]
     Active Substance: OMEPRAZOLE
     Indication: GASTROOESOPHAGEAL REFLUX DISEASE
  11. COENZYME Q10 [Concomitant]
     Active Substance: UBIDECARENONE
  12. TYLENOL [Concomitant]
     Active Substance: ACETAMINOPHEN
  13. ALLOPURINOL. [Concomitant]
     Active Substance: ALLOPURINOL
  14. DACOGEN [Suspect]
     Active Substance: DECITABINE
     Indication: ACUTE MYELOID LEUKAEMIA
     Dosage: 5 DAYS ON FOR A MONTH AND THEN OFF FOR 3 WEEKS AND THEN REPEAT
     Route: 042
     Dates: start: 20190311, end: 201905
  15. TRAMADOL. [Concomitant]
     Active Substance: TRAMADOL
     Indication: ARTHRALGIA
  16. VITAMIN B [Concomitant]
     Active Substance: VITAMIN B
  17. ACYCLOVIR [ACICLOVIR] [Concomitant]
     Active Substance: ACYCLOVIR
  18. METOPROLOL. [Concomitant]
     Active Substance: METOPROLOL
     Indication: BLOOD PRESSURE DIASTOLIC INCREASED
  19. LORTAB [Concomitant]
     Active Substance: ACETAMINOPHEN\HYDROCODONE BITARTRATE
     Indication: PAIN
  20. ACETAMINOPHEN. [Concomitant]
     Active Substance: ACETAMINOPHEN
     Indication: PAIN
  21. LEVAQUIN [Concomitant]
     Active Substance: LEVOFLOXACIN
  22. LEVOTHYROXINE. [Concomitant]
     Active Substance: LEVOTHYROXINE
     Indication: HYPOTHYROIDISM
  23. VFEND [Suspect]
     Active Substance: VORICONAZOLE
     Indication: ACUTE MYELOID LEUKAEMIA
     Route: 048
     Dates: start: 201903
  24. INDERAL [Concomitant]
     Active Substance: PROPRANOLOL HYDROCHLORIDE

REACTIONS (25)
  - Phlebitis [Unknown]
  - Pyrexia [Recovered/Resolved]
  - Haemoglobin decreased [Recovered/Resolved]
  - Deep vein thrombosis [Unknown]
  - Back pain [Recovered/Resolved]
  - Platelet count decreased [Recovered/Resolved]
  - Inflammation [Not Recovered/Not Resolved]
  - Speech disorder [Recovered/Resolved]
  - Intentional product use issue [Unknown]
  - Vitamin D decreased [Recovered/Resolved]
  - Mobility decreased [Recovering/Resolving]
  - Walking aid user [Not Recovered/Not Resolved]
  - Device related sepsis [Not Recovered/Not Resolved]
  - Osteomyelitis [Not Recovered/Not Resolved]
  - Blood count abnormal [Recovered/Resolved]
  - Atrial fibrillation [Unknown]
  - Blood magnesium decreased [Not Recovered/Not Resolved]
  - Gait inability [Recovering/Resolving]
  - Abscess [Recovered/Resolved]
  - Blood potassium decreased [Recovered/Resolved]
  - Memory impairment [Unknown]
  - Blood calcium decreased [Recovered/Resolved]
  - Off label use [Unknown]
  - Spinal cord abscess [Unknown]
  - Weight decreased [Not Recovered/Not Resolved]

NARRATIVE: CASE EVENT DATE: 2019
